FAERS Safety Report 21937311 (Version 1)
Quarter: 2023Q1

REPORT INFORMATION
  Report Type: Spontaneous
  Country: GB (occurrence: GB)
  Receive Date: 20230201
  Receipt Date: 20230201
  Transmission Date: 20230417
  Serious: Yes (Other)
  Sender: FDA-Public Use
  Company Number: None

PATIENT
  Sex: Female

DRUGS (1)
  1. HYDROCORTISONE [Suspect]
     Active Substance: HYDROCORTISONE
     Indication: Eczema
     Dosage: 1% HYDROCORTISONE CREAM AND OINTMENT ON AND OFF FOR YEARS,
     Route: 065

REACTIONS (11)
  - Erythema [Unknown]
  - Swelling [Unknown]
  - Topical steroid withdrawal reaction [Unknown]
  - Temperature regulation disorder [Unknown]
  - Vision blurred [Unknown]
  - Nausea [Unknown]
  - Headache [Unknown]
  - Insomnia [Unknown]
  - Pain [Unknown]
  - Skin weeping [Unknown]
  - Affective disorder [Unknown]

NARRATIVE: CASE EVENT DATE: 20220301
